FAERS Safety Report 21240142 (Version 3)
Quarter: 2022Q4

REPORT INFORMATION
  Report Type: Spontaneous
  Country: SE (occurrence: SE)
  Receive Date: 20220822
  Receipt Date: 20221208
  Transmission Date: 20230113
  Serious: Yes (Disabling)
  Sender: FDA-Public Use
  Company Number: SE-JAZZ-2022-SE-027232

PATIENT
  Age: 17 Year
  Sex: Female
  Weight: 58 kg

DRUGS (4)
  1. XYREM [Suspect]
     Active Substance: SODIUM OXYBATE
     Indication: Narcolepsy
     Dosage: 6.5 MILLILITER, BID
     Route: 048
     Dates: start: 20130918
  2. CONCERTA [Suspect]
     Active Substance: METHYLPHENIDATE HYDROCHLORIDE
     Indication: Product used for unknown indication
  3. RITALIN [Suspect]
     Active Substance: METHYLPHENIDATE HYDROCHLORIDE
     Indication: Product used for unknown indication
  4. STRATTERA [Concomitant]
     Active Substance: ATOMOXETINE HYDROCHLORIDE
     Indication: Product used for unknown indication
     Dosage: UNK
     Dates: start: 20140614

REACTIONS (8)
  - Bruxism [Not Recovered/Not Resolved]
  - Pain in jaw [Not Recovered/Not Resolved]
  - Product use issue [Unknown]
  - Decreased appetite [Unknown]
  - Dry mouth [Unknown]
  - Affective disorder [Unknown]
  - Disturbance in attention [Unknown]
  - Nausea [Unknown]

NARRATIVE: CASE EVENT DATE: 20130918
